FAERS Safety Report 10799579 (Version 1)
Quarter: 2015Q1

REPORT INFORMATION
  Report Type: Report from Study
  Country: US (occurrence: US)
  Receive Date: 20150216
  Receipt Date: 20150216
  Transmission Date: 20150721
  Serious: No
  Sender: FDA-Public Use
  Company Number: US-ABBVIE-14K-163-1237292-00

PATIENT
  Age: 59 Year
  Sex: Female

DRUGS (5)
  1. HUMIRA [Suspect]
     Active Substance: ADALIMUMAB
     Dates: start: 20140509, end: 20140509
  2. HUMIRA [Suspect]
     Active Substance: ADALIMUMAB
     Indication: CROHN^S DISEASE
     Dates: start: 20140425, end: 20140425
  3. HUMIRA [Suspect]
     Active Substance: ADALIMUMAB
  4. RENOVA [Concomitant]
     Active Substance: TRETINOIN
     Indication: SKIN DISCOLOURATION
     Route: 061
     Dates: end: 20140427
  5. UNKNOWN HORMONAL MEDICATION [Concomitant]
     Indication: HORMONE REPLACEMENT THERAPY

REACTIONS (2)
  - Injection site haemorrhage [Recovered/Resolved]
  - Wrong technique in drug usage process [Unknown]

NARRATIVE: CASE EVENT DATE: 20140509
